FAERS Safety Report 21404267 (Version 1)
Quarter: 2022Q4

REPORT INFORMATION
  Report Type: Spontaneous
  Country: US (occurrence: US)
  Receive Date: 20221003
  Receipt Date: 20221003
  Transmission Date: 20230112
  Serious: No
  Sender: FDA-Public Use
  Company Number: US-SA-SAC20220927000826

PATIENT
  Age: 24 Year
  Sex: Female

DRUGS (4)
  1. DUPIXENT [Suspect]
     Active Substance: DUPILUMAB
     Indication: Dermatitis atopic
     Dosage: 300 MG, QOW
     Route: 058
  2. ALLEGRA ALLERGY [Concomitant]
     Active Substance: FEXOFENADINE HYDROCHLORIDE
     Dosage: UNK
  3. TRIAMCINOLONE [Concomitant]
     Active Substance: TRIAMCINOLONE
     Dosage: UNK
  4. DROSPIRENONE [Concomitant]
     Active Substance: DROSPIRENONE
     Dosage: UNK

REACTIONS (7)
  - Depression [Unknown]
  - Arthropod bite [Unknown]
  - Skin hyperpigmentation [Unknown]
  - Erythema [Unknown]
  - Pruritus [Unknown]
  - Product dose omission in error [Unknown]
  - Injection site pain [Unknown]
